FAERS Safety Report 4599368-5 (Version None)
Quarter: 2005Q1

REPORT INFORMATION
  Report Type: 
  Country: None (occurrence: None)
  Receive Date: 20050303
  Receipt Date: 20050217
  Transmission Date: 20050727
  Serious: Yes (Death)
  Sender: FDA-Public Use
  Company Number: 2005S1000128

PATIENT
  Age: 39 Year
  Sex: Male

DRUGS (7)
  1. CLOZAPINE [Suspect]
     Dosage: 200MG HS, ORAL
     Route: 048
  2. FLUVOXAMINE MALEATE [Concomitant]
  3. LORATADINE [Concomitant]
  4. LORAZEPAM [Concomitant]
  5. QUETIAPINE FUMARATE [Concomitant]
  6. MONTELUKAST [Concomitant]
  7. FLUTICASONE/SALMETEROL [Concomitant]

REACTIONS (2)
  - MULTIPLE DRUG OVERDOSE ACCIDENTAL [None]
  - SELF-MEDICATION [None]
